FAERS Safety Report 5010120-9 (Version None)
Quarter: 2006Q2

REPORT INFORMATION
  Report Type: 
  Country: None (occurrence: None)
  Receive Date: 20060404
  Receipt Date: 20051207
  Transmission Date: 20061013
  Serious: No
  Sender: FDA-Public Use
  Company Number: US200512001303

PATIENT
  Age: 66 Year
  Sex: Female

DRUGS (1)
  1. CYMBALTA [Suspect]
     Indication: FIBROMYALGIA
     Dosage: 60 MG, DAILY (1/D),
     Dates: start: 20051101

REACTIONS (3)
  - DYSPHAGIA [None]
  - OESOPHAGEAL PAIN [None]
  - REFLUX GASTRITIS [None]
